FAERS Safety Report 23504901 (Version 1)
Quarter: 2024Q1

REPORT INFORMATION
  Report Type: Spontaneous
  Country: GB (occurrence: GB)
  Receive Date: 20240209
  Receipt Date: 20240209
  Transmission Date: 20240410
  Serious: No
  Sender: FDA-Public Use
  Company Number: None

PATIENT
  Age: 83 Year
  Sex: Female
  Weight: 65 kg

DRUGS (11)
  1. GABAPENTIN [Suspect]
     Active Substance: GABAPENTIN
     Indication: Product used for unknown indication
     Dosage: UNK (CAPSULES)
     Route: 065
  2. ASPIRIN [Concomitant]
     Active Substance: ASPIRIN
     Indication: Cardiovascular disorder
     Dosage: 1 DOSAGE FORM, QD (1 EVERY MORNING TO REDUCE CVD RISK)
     Route: 065
     Dates: start: 20221220
  3. ATORVASTATIN [Concomitant]
     Active Substance: ATORVASTATIN
     Indication: Blood cholesterol
     Dosage: 1 DOSAGE FORM, QD (TAKE ONE DAILY TO LOWER CHOLESTEROL)
     Route: 065
     Dates: start: 20221220
  4. BISOPROLOL [Concomitant]
     Active Substance: BISOPROLOL\BISOPROLOL FUMARATE
     Indication: Left ventricular dysfunction
     Dosage: 1 DOSAGE FORM, QD (1 EVERY DAY FOR LVD)
     Route: 065
     Dates: start: 20221220
  5. COCODAMOL [Concomitant]
     Active Substance: ACETAMINOPHEN\CODEINE PHOSPHATE
     Indication: Product used for unknown indication
     Dosage: UNK, PRN (1 OR 2 FOUR TIMES A DAY WHEN REQUIRED) (8MG/500MG)
     Route: 065
     Dates: start: 20230126
  6. COCODAMOL [Concomitant]
     Active Substance: ACETAMINOPHEN\CODEINE PHOSPHATE
     Dosage: UNK, PRN (1 OR 2 FOUR TIMES A DAY WHEN REQUIRED) (8MG/500MG)
     Route: 065
     Dates: start: 20230222
  7. FUROSEMIDE [Concomitant]
     Active Substance: FUROSEMIDE
     Indication: Product used for unknown indication
     Dosage: 1 DOSAGE FORM, QD (1 EVERY MORNING)
     Route: 065
     Dates: start: 20221129
  8. RAMIPRIL [Concomitant]
     Active Substance: RAMIPRIL
     Indication: Blood pressure measurement
     Dosage: 1 DOSAGE FORM, BID
     Route: 065
     Dates: start: 20221220
  9. SPIRONOLACTONE [Concomitant]
     Active Substance: SPIRONOLACTONE
     Indication: Product used for unknown indication
     Dosage: 1 DOSAGE FORM, QD
     Route: 065
     Dates: start: 20221129
  10. SPIRONOLACTONE [Concomitant]
     Active Substance: SPIRONOLACTONE
     Dosage: 1 DOSAGE FORM, QD
     Route: 065
     Dates: start: 20221129, end: 20230222
  11. SPIRONOLACTONE [Concomitant]
     Active Substance: SPIRONOLACTONE
     Dosage: 1 DOSAGE FORM, QD
     Route: 065
     Dates: start: 20230222

REACTIONS (1)
  - Somnolence [Recovered/Resolved]
